FAERS Safety Report 10495108 (Version 2)
Quarter: 2014Q4

REPORT INFORMATION
  Report Type: Spontaneous
  Country: US (occurrence: US)
  Receive Date: 20141003
  Receipt Date: 20141003
  Transmission Date: 20150528
  Serious: No
  Sender: FDA-Public Use
  Company Number: US-EISAI MEDICAL RESEARCH-AP356-01257-SPO-US

PATIENT
  Age: 50 Year
  Sex: Female
  Weight: 83 kg

DRUGS (3)
  1. BIOTIN [Concomitant]
     Active Substance: BIOTIN
  2. BELVIQ [Suspect]
     Active Substance: LORCASERIN HYDROCHLORIDE
     Indication: OBESITY
     Route: 048
     Dates: start: 20140820, end: 20140908
  3. MVI [Concomitant]
     Active Substance: VITAMINS

REACTIONS (3)
  - Migraine [Recovered/Resolved]
  - Vision blurred [Recovered/Resolved]
  - Somnolence [Not Recovered/Not Resolved]

NARRATIVE: CASE EVENT DATE: 20140821
